FAERS Safety Report 7351096-9 (Version None)
Quarter: 2011Q1

REPORT INFORMATION
  Report Type: 
  Country: None (occurrence: None)
  Receive Date: 20110314
  Receipt Date: 20110309
  Transmission Date: 20110831
  Serious: Yes (Other)
  Sender: FDA-Public Use
  Company Number: DE-PFIZER INC-2010053475

PATIENT
  Age: 54 Year
  Sex: Male

DRUGS (7)
  1. TAVOR [Concomitant]
     Indication: SLEEP DISORDER
     Dosage: 2.5 MG AT NIGHT, AS NEEDED
  2. TAVOR [Concomitant]
     Indication: ANXIETY DISORDER
     Dosage: 1.25 MG, 1X/DAY (HALF OF 2.5 MG)
     Route: 048
  3. LYRICA [Suspect]
     Indication: SLEEP DISORDER
     Dosage: SLOWLY TITRATED UP TO 300MG
     Route: 048
  4. FLUOXETINE [Concomitant]
     Dosage: 20 MG, 1X/DAY
     Route: 048
  5. ATOSIL [Concomitant]
  6. LYRICA [Suspect]
     Indication: ANXIETY DISORDER
     Dosage: 75 MG, 3X/DAY
     Route: 048
  7. LYRICA [Suspect]
     Indication: PANIC DISORDER

REACTIONS (23)
  - ABDOMINAL DISTENSION [None]
  - POOR PERIPHERAL CIRCULATION [None]
  - GAIT DISTURBANCE [None]
  - WEIGHT INCREASED [None]
  - CONSTIPATION [None]
  - THINKING ABNORMAL [None]
  - HYPERAESTHESIA [None]
  - CHILLS [None]
  - FEELING DRUNK [None]
  - LETHARGY [None]
  - VISION BLURRED [None]
  - DRUG INEFFECTIVE [None]
  - APHASIA [None]
  - FEELING COLD [None]
  - PERIPHERAL COLDNESS [None]
  - PARAESTHESIA [None]
  - VERTIGO [None]
  - SOMNOLENCE [None]
  - LOSS OF LIBIDO [None]
  - INDIFFERENCE [None]
  - CONFUSIONAL STATE [None]
  - DEPRESSION [None]
  - AMNESIA [None]
